FAERS Safety Report 20521286 (Version 5)
Quarter: 2024Q4

REPORT INFORMATION
  Report Type: Spontaneous
  Country: US (occurrence: US)
  Receive Date: 20220226
  Receipt Date: 20241222
  Transmission Date: 20250114
  Serious: No
  Sender: BRISTOL-MYERS SQUIBB COMPANY
  Company Number: US-BRISTOL-MYERS SQUIBB COMPANY-BMS-2022-027560

PATIENT
  Age: 53 Year
  Sex: Female

DRUGS (3)
  1. DASATINIB [Suspect]
     Active Substance: DASATINIB
     Indication: Chronic myeloid leukaemia
     Dosage: 70 MILLIGRAM, QD
     Route: 048
     Dates: start: 20210916
  2. DASATINIB [Suspect]
     Active Substance: DASATINIB
     Route: 048
  3. DASATINIB [Suspect]
     Active Substance: DASATINIB
     Route: 048
     Dates: start: 202203

REACTIONS (3)
  - Rash [Unknown]
  - Nasal disorder [Unknown]
  - Skin irritation [Unknown]

NARRATIVE: CASE EVENT DATE: 20220201
